FAERS Safety Report 8491231-2 (Version None)
Quarter: 2012Q3

REPORT INFORMATION
  Report Type: 
  Country: None (occurrence: None)
  Receive Date: 20120706
  Receipt Date: 20120628
  Transmission Date: 20120928
  Serious: Yes (Other)
  Sender: FDA-Public Use
  Company Number: US-ASTELLAS-2012US005860

PATIENT

DRUGS (2)
  1. VESICARE [Suspect]
     Indication: PRODUCT USED FOR UNKNOWN INDICATION
     Dosage: 5 MG, UNKNOWN/D
     Route: 048
     Dates: start: 20120101
  2. GLAUCOMA MEDICATIONS [Concomitant]
     Indication: OPEN ANGLE GLAUCOMA
     Dosage: UNK
     Route: 065

REACTIONS (1)
  - INTRAOCULAR PRESSURE INCREASED [None]
